FAERS Safety Report 17750202 (Version 2)
Quarter: 2020Q2

REPORT INFORMATION
  Report Type: Spontaneous
  Country: US (occurrence: US)
  Receive Date: 20200506
  Receipt Date: 20200511
  Transmission Date: 20200714
  Serious: No
  Sender: FDA-Public Use
  Company Number: US-PFIZER INC-2020179579

PATIENT
  Age: 72 Year
  Sex: Female
  Weight: 72.57 kg

DRUGS (2)
  1. XELJANZ XR [Suspect]
     Active Substance: TOFACITINIB CITRATE
     Indication: RHEUMATOID ARTHRITIS
     Dosage: 11 MG, 1X/DAY
     Route: 048
     Dates: end: 20200420
  2. HYDROCORTISONE. [Concomitant]
     Active Substance: HYDROCORTISONE
     Indication: ADDISON^S DISEASE
     Dosage: UNK

REACTIONS (5)
  - Pain [Recovering/Resolving]
  - Constipation [Unknown]
  - Hypoacusis [Unknown]
  - Feeling abnormal [Unknown]
  - Fatigue [Recovering/Resolving]
